FAERS Safety Report 8415551-2 (Version None)
Quarter: 2012Q2

REPORT INFORMATION
  Report Type: 
  Country: None (occurrence: None)
  Receive Date: 20120606
  Receipt Date: 20120525
  Transmission Date: 20120825
  Serious: Yes (Hospitalization, Other)
  Sender: FDA-Public Use
  Company Number: US-BAYER-2012-051939

PATIENT
  Age: 74 Year
  Sex: Male
  Weight: 104.78 kg

DRUGS (17)
  1. XARELTO [Interacting]
     Indication: THROMBOSIS PROPHYLAXIS
     Dosage: 10 MG, QD
     Route: 048
     Dates: start: 20111108
  2. XARELTO [Interacting]
     Indication: KNEE ARTHROPLASTY
  3. MENTAX [Concomitant]
  4. BENICAR [Concomitant]
  5. SYMLIN [Concomitant]
  6. LANTUS [Concomitant]
  7. BUMEX [Concomitant]
  8. SIMVASTATIN [Concomitant]
  9. SULINDAC [Interacting]
     Indication: ILL-DEFINED DISORDER
     Dosage: 150 MG, UNK
  10. PRILOSEC [Concomitant]
  11. ALLOPURINOL [Concomitant]
  12. ASPIRIN [Suspect]
     Dosage: 81 MG, UNK
     Dates: start: 20111001
  13. ASPIRIN [Interacting]
     Dosage: 81 MG, UNK
     Dates: start: 20111108
  14. AMLODIPINE [Concomitant]
  15. GABAPENTIN [Concomitant]
  16. INSULIN ASPART [Concomitant]
  17. HYDRALAZINE HCL [Concomitant]

REACTIONS (1)
  - GASTROINTESTINAL HAEMORRHAGE [None]
